FAERS Safety Report 19073542 (Version 2)
Quarter: 2021Q2

REPORT INFORMATION
  Report Type: Spontaneous
  Country: US (occurrence: US)
  Receive Date: 20210330
  Receipt Date: 20210407
  Transmission Date: 20210717
  Serious: No
  Sender: FDA-Public Use
  Company Number: US-PFIZER INC-2020023663

PATIENT
  Age: 84 Year
  Sex: Female

DRUGS (1)
  1. XELJANZ [Suspect]
     Active Substance: TOFACITINIB CITRATE
     Indication: FUNGAL INFECTION
     Dosage: 5 MG

REACTIONS (9)
  - Product use in unapproved indication [Unknown]
  - Drug effective for unapproved indication [Unknown]
  - Psoriasis [Unknown]
  - Off label use [Unknown]
  - Product prescribing error [Unknown]
  - Rash [Unknown]
  - Urticaria [Unknown]
  - Skin exfoliation [Unknown]
  - Rash macular [Unknown]
